FAERS Safety Report 25352202 (Version 1)
Quarter: 2025Q2

REPORT INFORMATION
  Report Type: Spontaneous
  Country: US (occurrence: None)
  Receive Date: 20250522
  Receipt Date: 20250522
  Transmission Date: 20250716
  Serious: Yes (Hospitalization)
  Sender: FDA-CTU
  Company Number: None

PATIENT
  Age: 52 Year
  Sex: Female
  Weight: 54 kg

DRUGS (1)
  1. GLYCOLIC ACID\KOJIC ACID [Suspect]
     Active Substance: GLYCOLIC ACID\KOJIC ACID
     Indication: Xanthelasma
     Route: 061
     Dates: start: 20250301, end: 20250301

REACTIONS (4)
  - Chemical burn of skin [None]
  - Periorbital swelling [None]
  - Suspected counterfeit product [None]
  - Product quality issue [None]

NARRATIVE: CASE EVENT DATE: 20250305
